FAERS Safety Report 5904395-9 (Version None)
Quarter: 2008Q3

REPORT INFORMATION
  Report Type: 
  Country: None (occurrence: None)
  Receive Date: 20080930
  Receipt Date: 20080930
  Transmission Date: 20090109
  Serious: Yes (Life-Threatening)
  Sender: FDA-Public Use
  Company Number: None

PATIENT
  Age: 36 Year
  Sex: Male
  Weight: 56.6996 kg

DRUGS (2)
  1. ROBUTUSSIN -ROBITUSSIN- COUGH + COLD WYETH [Suspect]
     Dosage: ROBUTUSSIN COUGH + COLD Q4HR PO, 1 DOSE ONLY
     Route: 048
     Dates: start: 20080928, end: 20080928
  2. ACYCLOVIR [Suspect]

REACTIONS (2)
  - ALTERED STATE OF CONSCIOUSNESS [None]
  - BLOOD PRESSURE DECREASED [None]
